FAERS Safety Report 15452911 (Version 9)
Quarter: 2021Q3

REPORT INFORMATION
  Report Type: Spontaneous
  Country: US (occurrence: US)
  Receive Date: 20181001
  Receipt Date: 20210716
  Transmission Date: 20211014
  Serious: No
  Sender: FDA-Public Use
  Company Number: US-PFIZER INC-2018392323

PATIENT
  Age: 12 Year
  Sex: Male
  Weight: 66.68 kg

DRUGS (4)
  1. GENOTROPIN [Suspect]
     Active Substance: SOMATROPIN
     Indication: GROWTH HORMONE DEFICIENCY
     Dosage: 1.6 MG, DAILY
     Dates: start: 20180911
  2. GENOTROPIN [Suspect]
     Active Substance: SOMATROPIN
     Dosage: 2.0 MG, 1X/DAY
     Dates: start: 201808
  3. GENOTROPIN [Suspect]
     Active Substance: SOMATROPIN
     Dosage: (2.6), DAILY
  4. GENOTROPIN [Suspect]
     Active Substance: SOMATROPIN
     Dosage: 1.8 MG
     Dates: start: 20180917

REACTIONS (7)
  - Drug dose omission by device [Unknown]
  - Device leakage [Unknown]
  - Device use error [Unknown]
  - Headache [Recovered/Resolved]
  - Device information output issue [Unknown]
  - Product quality issue [Unknown]
  - Device mechanical issue [Unknown]
